FAERS Safety Report 17882343 (Version 1)
Quarter: 2020Q2

REPORT INFORMATION
  Report Type: Spontaneous
  Country: US (occurrence: US)
  Receive Date: 20200610
  Receipt Date: 20200610
  Transmission Date: 20200714
  Serious: No
  Sender: FDA-Public Use
  Company Number: US-PFIZER INC-2020222171

PATIENT
  Age: 6 Year
  Sex: Female
  Weight: 24.1 kg

DRUGS (16)
  1. LEVETIRACETAM. [Concomitant]
     Active Substance: LEVETIRACETAM
     Indication: SEIZURE
     Dosage: 5 ML, 2X/DAY (BY FEEDING TUBE ROUTE)
  2. ONDANSETRON [Concomitant]
     Active Substance: ONDANSETRON
     Indication: NAUSEA
     Dosage: 2.5 ML, 2X/DAY
     Route: 048
  3. TRIAMCINOLONE ACETONIDE. [Concomitant]
     Active Substance: TRIAMCINOLONE ACETONIDE
     Indication: RASH
     Dosage: UNK UNK, AS NEEDED [TWICE DAILY AS NEEDED, 0.025%]
     Route: 061
  4. SUPPRELIN LA [Concomitant]
     Active Substance: HISTRELIN ACETATE
     Dosage: UNK (IMPLANT ROUTE)
     Route: 061
  5. SILVER SULFADIAZINE. [Concomitant]
     Active Substance: SILVER SULFADIAZINE
     Indication: STOMA SITE IRRITATION
     Dosage: UNK UNK, AS NEEDED [APPLY WITH A STERILE GLOVED HAND]
     Route: 061
  6. CLONIDINE [CLONIDINE HYDROCHLORIDE] [Concomitant]
     Dosage: 8 ML, 1X/DAY [ONCE DAILY AT BEDTIME]
     Route: 048
  7. ALBUTEROL HFA [Concomitant]
     Active Substance: ALBUTEROL SULFATE
     Indication: WHEEZING
  8. ONDANSETRON [Concomitant]
     Active Substance: ONDANSETRON
     Indication: VOMITING
  9. ALBUTEROL HFA [Concomitant]
     Active Substance: ALBUTEROL SULFATE
     Indication: COUGH
     Dosage: 180 UG [ACTUATION INHALATION HFA AEROSOL INHALER, EVERY 4 HOURS IF NEEDED]
     Route: 048
  10. BINIMETINIB [Suspect]
     Active Substance: BINIMETINIB
     Indication: ASTROCYTOMA
     Dosage: 18 ML, 2X/DAY (TAKE 18 ML BY MOUTH TWO TIMES DAILY. TAKE DOSES WITH WATER APPROXIMATELY 12 +/- 2 HOU
     Route: 048
     Dates: start: 20181029
  11. BETAMETHASONE DIPROPIONATE. [Concomitant]
     Active Substance: BETAMETHASONE DIPROPIONATE
     Dosage: 0.05 % TOPICAL OINTMENT, APPLY TO AFFECTED AREA TWICE DAILY AS NEEDED
     Route: 061
  12. ALBUTEROL [SALBUTAMOL] [Concomitant]
     Active Substance: ALBUTEROL
     Dosage: 0.083% 2.5 MG/3 ML (0.083 %) INHALATION SOLUTION FOR NEBULIZATION
     Route: 045
  13. MUPIROCIN. [Concomitant]
     Active Substance: MUPIROCIN
     Indication: SKIN INFECTION
     Dosage: UNK UNK, 3X/DAY [APPLY TO AFFECTED AREA THREE TIMES DAILY]
     Route: 061
  14. TRIAMCINOLONE ACETONIDE. [Concomitant]
     Active Substance: TRIAMCINOLONE ACETONIDE
     Indication: RASH
     Dosage: UNK UNK, AS NEEDED [TWICE DAILY AS NEEDED, 0.1 %]
     Route: 061
  15. DOCUSATE SODIUM. [Concomitant]
     Active Substance: DOCUSATE SODIUM
     Indication: CONSTIPATION
     Dosage: 5 ML, AS NEEDED [TWICE DAILY AS NEEDED]
     Route: 048
  16. TRIAMCINOLONE ACETONIDE. [Concomitant]
     Active Substance: TRIAMCINOLONE ACETONIDE
     Indication: RASH
     Dosage: UNK UNK, AS NEEDED [THREE TIMES DAILY AS NEEDED, 0.5 %]
     Route: 061

REACTIONS (7)
  - Urinary tract infection [Unknown]
  - Rash [Recovering/Resolving]
  - Off label use [Unknown]
  - Product use issue [Unknown]
  - Sinusitis [Unknown]
  - Oedema peripheral [Unknown]
  - Product use in unapproved indication [Unknown]
